FAERS Safety Report 5195455-1 (Version None)
Quarter: 2006Q4

REPORT INFORMATION
  Report Type: 
  Country: None (occurrence: None)
  Receive Date: 20061230
  Receipt Date: 20061222
  Transmission Date: 20070319
  Serious: Yes (Other)
  Sender: FDA-Public Use
  Company Number: FR-ABBOTT-06P-056-0354221-00

PATIENT
  Sex: Male

DRUGS (3)
  1. VALPROATE SODIUM [Suspect]
     Indication: AFFECTIVE DISORDER
     Route: 048
     Dates: start: 20021201, end: 20061001
  2. VALPROATE SODIUM [Suspect]
     Route: 048
     Dates: start: 20061001
  3. ZOPICLONE [Concomitant]
     Indication: SLEEP DISORDER
     Route: 048
     Dates: start: 20020101

REACTIONS (2)
  - HEARING IMPAIRED [None]
  - HYPOACUSIS [None]
